FAERS Safety Report 5684046-1 (Version None)
Quarter: 2008Q1

REPORT INFORMATION
  Report Type: 
  Country: None (occurrence: None)
  Receive Date: 20080328
  Receipt Date: 20080318
  Transmission Date: 20080703
  Serious: Yes (Hospitalization, Other)
  Sender: FDA-Public Use
  Company Number: US-AMGEN-US270174

PATIENT
  Sex: Female

DRUGS (1)
  1. ARANESP [Suspect]
     Indication: DIALYSIS
     Dates: start: 20070101

REACTIONS (3)
  - APLASIA PURE RED CELL [None]
  - PERITONITIS [None]
  - THERAPEUTIC RESPONSE DECREASED [None]
